FAERS Safety Report 9348706 (Version 1)
Quarter: 2013Q2

REPORT INFORMATION
  Report Type: Spontaneous
  Country: US (occurrence: US)
  Receive Date: 20130614
  Receipt Date: 20130614
  Transmission Date: 20140414
  Serious: Yes (Hospitalization)
  Sender: FDA-Public Use
  Company Number: US-BAYER-2013-070177

PATIENT
  Age: 19 Year
  Sex: Female

DRUGS (5)
  1. GIANVI [Suspect]
  2. YAZ [Suspect]
     Indication: ACNE
  3. PENICILLIN V POTASSIUM [Concomitant]
     Dosage: 500 MG, UNK
     Dates: start: 20120213
  4. IBUPROFEN [Concomitant]
  5. NAPROXEN [Concomitant]

REACTIONS (1)
  - Deep vein thrombosis [None]
